FAERS Safety Report 9414234 (Version 1)
Quarter: 2013Q2

REPORT INFORMATION
  Report Type: Spontaneous
  Country: JP (occurrence: None)
  Receive Date: 20130619
  Receipt Date: 20130619
  Transmission Date: 20140414
  Serious: Yes (Other)
  Sender: FDA-Public Use
  Company Number: DSA_57381_2012

PATIENT
  Age: 74 Year
  Sex: Male

DRUGS (5)
  1. MACUGEN [Suspect]
     Route: 031
     Dates: start: 20081224, end: 20081224
  2. XYLOCAINE [Suspect]
  3. ISODINE [Suspect]
  4. PHENYLEPHRINE\TROPICAMIDE [Suspect]
  5. VEGAMOX [Suspect]

REACTIONS (1)
  - Retinal pigment epithelial tear [None]
